FAERS Safety Report 13614738 (Version 1)
Quarter: 2017Q2

REPORT INFORMATION
  Report Type: Spontaneous
  Country: US (occurrence: US)
  Receive Date: 20170606
  Receipt Date: 20170606
  Transmission Date: 20170830
  Serious: No
  Sender: FDA-Public Use
  Company Number: US-GLAXOSMITHKLINE-US2017083405

PATIENT
  Sex: Female

DRUGS (4)
  1. NICODERM CQ [Suspect]
     Active Substance: NICOTINE
     Indication: NARCOLEPSY
     Dosage: 14 MG, UNK
     Dates: start: 20170520
  2. NICODERM CQ [Suspect]
     Active Substance: NICOTINE
     Indication: NARCOLEPSY
     Dosage: UNK
  3. NICODERM CQ [Suspect]
     Active Substance: NICOTINE
     Indication: CATAPLEXY
  4. NICODERM CQ [Suspect]
     Active Substance: NICOTINE
     Indication: CATAPLEXY

REACTIONS (1)
  - Product use in unapproved indication [Unknown]

NARRATIVE: CASE EVENT DATE: 20170520
